FAERS Safety Report 13151343 (Version 1)
Quarter: 2017Q1

REPORT INFORMATION
  Report Type: Spontaneous
  Country: US (occurrence: US)
  Receive Date: 20170124
  Receipt Date: 20170124
  Transmission Date: 20170428
  Serious: Yes (Other)
  Sender: FDA-Public Use
  Company Number: US-SCIEGEN PHARMACEUTICALS INC-2017SCILIT00005

PATIENT

DRUGS (3)
  1. METFORMIN HYDROCHLORIDE TABLETS, USP [Suspect]
     Active Substance: METFORMIN HYDROCHLORIDE
     Indication: HYPERGLYCAEMIA
     Dosage: UNKNOWN
     Route: 065
  2. INCRETINS [Suspect]
     Active Substance: UNSPECIFIED INGREDIENT
     Indication: HYPERGLYCAEMIA
     Dosage: UNKNOWN
     Route: 065
  3. SYMLIN [Suspect]
     Active Substance: PRAMLINTIDE ACETATE
     Indication: HYPERGLYCAEMIA
     Dosage: UNKNOWN
     Route: 065

REACTIONS (5)
  - Gastrointestinal disorder [Unknown]
  - Adverse drug reaction [Unknown]
  - Glycosylated haemoglobin increased [Recovering/Resolving]
  - Drug intolerance [Unknown]
  - Diabetes mellitus inadequate control [Unknown]
